FAERS Safety Report 20978215 (Version 1)
Quarter: 2022Q2

REPORT INFORMATION
  Report Type: Spontaneous
  Country: US (occurrence: US)
  Receive Date: 20220618
  Receipt Date: 20220618
  Transmission Date: 20220721
  Serious: No
  Sender: FDA-Public Use
  Company Number: US-SA-SAC20220615000246

PATIENT
  Sex: Female

DRUGS (18)
  1. AUBAGIO [Suspect]
     Active Substance: TERIFLUNOMIDE
     Indication: Multiple sclerosis
     Dosage: 14MG FREQUENCY: DAILY
     Route: 048
  2. MINERALS\VITAMINS [Concomitant]
     Active Substance: MINERALS\VITAMINS
     Dosage: 27MG-O
  3. ZYRTEC-D [Concomitant]
     Active Substance: CETIRIZINE HYDROCHLORIDE\PSEUDOEPHEDRINE HYDROCHLORIDE
     Dosage: 5 MG-120MG TAB SR 12H
  4. ZOLOFT [Concomitant]
     Active Substance: SERTRALINE HYDROCHLORIDE
  5. VITAMINS [Concomitant]
     Active Substance: VITAMINS
  6. COPAXONE [Concomitant]
     Active Substance: GLATIRAMER ACETATE
  7. ALPRAZOLAM [Concomitant]
     Active Substance: ALPRAZOLAM
  8. CALCIUM [Concomitant]
     Active Substance: CALCIUM
  9. FOLIC ACID [Concomitant]
     Active Substance: FOLIC ACID
  10. IBUPROFEN [Concomitant]
     Active Substance: IBUPROFEN
  11. .ALPHA.-TOCOPHEROL [Concomitant]
     Active Substance: .ALPHA.-TOCOPHEROL
  12. MAXEPA [DOCOSAHEXAENOIC ACID;EICOSAPENTAENOIC ACID] [Concomitant]
  13. VITAMIN D3 [Concomitant]
     Active Substance: CHOLECALCIFEROL
  14. MAGNESIUM [Concomitant]
     Active Substance: MAGNESIUM
  15. PROVIGIL [Concomitant]
     Active Substance: MODAFINIL
  16. SINGULAIR [Concomitant]
     Active Substance: MONTELUKAST SODIUM
  17. FISH OIL [Concomitant]
     Active Substance: FISH OIL
  18. IRON [Concomitant]
     Active Substance: IRON

REACTIONS (2)
  - Paraesthesia [Unknown]
  - Alopecia [Unknown]

NARRATIVE: CASE EVENT DATE: 20220401
